FAERS Safety Report 7397249-5 (Version None)
Quarter: 2011Q2

REPORT INFORMATION
  Report Type: 
  Country: None (occurrence: None)
  Receive Date: 20110406
  Receipt Date: 20110328
  Transmission Date: 20111010
  Serious: Yes (Disabling)
  Sender: FDA-Public Use
  Company Number: CA-ASTRAZENECA-2011SE09479

PATIENT
  Age: 65 Year
  Sex: Female

DRUGS (14)
  1. Q10 [Concomitant]
  2. CALCIUM [Concomitant]
  3. MAGNESIUM [Concomitant]
  4. HYDRA-ZIDE [Concomitant]
     Dosage: OD
     Route: 048
     Dates: start: 20030101
  5. LOVAZA [Concomitant]
  6. ASCORBIC ACID [Concomitant]
  7. VITAMIN E [Concomitant]
     Dosage: 400
  8. GLUCOSAMINE CHONDROITIN [Concomitant]
  9. ATENOLOL [Concomitant]
     Route: 048
  10. ASPIRIN [Concomitant]
     Route: 048
     Dates: start: 20090101
  11. CRESTOR [Suspect]
     Route: 048
     Dates: start: 20110205
  12. OMEGA 6 [Concomitant]
  13. MULTI-VITAMINS [Concomitant]
  14. CRESTOR [Suspect]
     Route: 048
     Dates: start: 20110101, end: 20110119

REACTIONS (3)
  - MUSCLE SPASMS [None]
  - ARRHYTHMIA [None]
  - MYALGIA [None]
